FAERS Safety Report 16171492 (Version 3)
Quarter: 2019Q3

REPORT INFORMATION
  Report Type: Report from Study
  Country: US (occurrence: US)
  Receive Date: 20190408
  Receipt Date: 20190729
  Transmission Date: 20191004
  Serious: No
  Sender: FDA-Public Use
  Company Number: PHEH2019US014398

PATIENT
  Sex: Male

DRUGS (2)
  1. ENTRESTO [Suspect]
     Active Substance: SACUBITRIL\VALSARTAN
     Dosage: UNK, BID
     Route: 048
  2. ENTRESTO [Suspect]
     Active Substance: SACUBITRIL\VALSARTAN
     Indication: CARDIAC FAILURE
     Dosage: 50 MG,(24 MG SACUBITRIL, 26 MG VALSARTAN) UNK
     Route: 048

REACTIONS (5)
  - Musculoskeletal discomfort [Unknown]
  - Rotator cuff syndrome [Unknown]
  - Upper limb fracture [Unknown]
  - Asthenia [Unknown]
  - Fall [Unknown]
